FAERS Safety Report 7842926 (Version 2)
Quarter: 2012Q4

REPORT INFORMATION
  Report Type: 
  Country: US (occurrence: US)
  Receive Date: 20110307
  Receipt Date: 20121025
  Transmission Date: 20130627
  Serious: Yes (Death, Hospitalization, Other)
  Sender: FDA-Public Use
  Company Number: US-CELGENEUS-163-21880-11022757

PATIENT
  Age: 59 Year
  Sex: Male

DRUGS (2)
  1. REVLIMID [Suspect]
     Indication: MALIGNANT NEOPLASM OF HEAD, FACE, AND NECK NOS
     Dosage: 25 Milligram
     Route: 048
     Dates: start: 20101005, end: 20110206
  2. ASA [Concomitant]
     Indication: THROMBOSIS PROPHYLAXIS
     Dosage: 81 Milligram
     Route: 048

REACTIONS (2)
  - Head and neck cancer [Fatal]
  - Post procedural haemorrhage [Recovered/Resolved]
